FAERS Safety Report 6860877-7 (Version None)
Quarter: 2010Q3

REPORT INFORMATION
  Report Type: 
  Country: None (occurrence: None)
  Receive Date: 20100719
  Receipt Date: 20100719
  Transmission Date: 20110219
  Serious: Yes (Other)
  Sender: FDA-Public Use
  Company Number: None

PATIENT
  Sex: Male
  Weight: 84.369 kg

DRUGS (1)
  1. FINASTERIDE 5MG TEVA USA [Suspect]
     Indication: BENIGN PROSTATIC HYPERPLASIA
     Dosage: ONE EVERY DAY PO, SEVERAL MONTHS
     Route: 048

REACTIONS (4)
  - MASS [None]
  - NIPPLE DISORDER [None]
  - NIPPLE PAIN [None]
  - SCROTAL OEDEMA [None]
